FAERS Safety Report 12505370 (Version 2)
Quarter: 2016Q3

REPORT INFORMATION
  Report Type: Spontaneous
  Country: US (occurrence: US)
  Receive Date: 20160628
  Receipt Date: 20160801
  Transmission Date: 20161109
  Serious: No
  Sender: FDA-Public Use
  Company Number: US-BAYER-2016-125178

PATIENT
  Age: 21 Year
  Sex: Female

DRUGS (1)
  1. GADAVIST [Suspect]
     Active Substance: GADOBUTROL
     Indication: NUCLEAR MAGNETIC RESONANCE IMAGING BRAIN
     Dosage: 5.5 ML, ONCE
     Route: 042
     Dates: start: 20160624, end: 20160624

REACTIONS (6)
  - Blood pressure decreased [Recovered/Resolved]
  - Urticaria [Recovered/Resolved]
  - Nausea [Recovered/Resolved]
  - Pallor [Recovered/Resolved]
  - Dizziness [None]
  - Urticaria [None]

NARRATIVE: CASE EVENT DATE: 20160624
